FAERS Safety Report 16919668 (Version 3)
Quarter: 2021Q1

REPORT INFORMATION
  Report Type: Spontaneous
  Country: IN (occurrence: IN)
  Receive Date: 20191015
  Receipt Date: 20210305
  Transmission Date: 20210419
  Serious: Yes (Hospitalization)
  Sender: FDA-Public Use
  Company Number: IN-CELGENEUS-IND-20191002937

PATIENT
  Age: 53 Year
  Sex: Female

DRUGS (40)
  1. ABRAXANE [Suspect]
     Active Substance: PACLITAXEL
     Indication: NON-SMALL CELL LUNG CANCER STAGE IV
     Dosage: 150 MILLIGRAM
     Route: 041
     Dates: start: 20190814, end: 20190814
  2. CARBOPLATIN. [Concomitant]
     Active Substance: CARBOPLATIN
     Indication: NON-SMALL CELL LUNG CANCER STAGE IV
     Route: 041
     Dates: start: 20190814, end: 20190814
  3. GRAFEEL [Concomitant]
     Indication: NEUTROPHIL COUNT DECREASED
     Dosage: 300 MILLIGRAM
     Route: 058
     Dates: start: 20190918, end: 20190919
  4. GRANISETRON [Concomitant]
     Active Substance: GRANISETRON
     Dosage: 3 MILLIGRAM
     Route: 042
     Dates: start: 20190920, end: 20190920
  5. PAN D [Concomitant]
     Indication: PROPHYLAXIS OF NAUSEA AND VOMITING
     Dosage: 80 MILLIGRAM
     Route: 048
     Dates: start: 20190814, end: 20190815
  6. ZOFER [Concomitant]
     Active Substance: ONDANSETRON HYDROCHLORIDE
     Dosage: 8 MILLIGRAM
     Route: 048
     Dates: start: 20190920, end: 20190921
  7. GRANISETRON [Concomitant]
     Active Substance: GRANISETRON
     Dosage: 8 MILLIGRAM
     Route: 042
     Dates: start: 20191109, end: 20191109
  8. PAN D [Concomitant]
     Indication: PROPHYLAXIS OF NAUSEA AND VOMITING
     Dosage: 80 MILLIGRAM
     Route: 048
     Dates: start: 20190822, end: 20190823
  9. PAN D [Concomitant]
     Dosage: 80 MILLIGRAM
     Route: 048
     Dates: start: 20190828, end: 20190829
  10. ZOFER [Concomitant]
     Active Substance: ONDANSETRON HYDROCHLORIDE
     Dosage: 8 MILLIGRAM
     Route: 048
     Dates: start: 20190828, end: 20190829
  11. ZOFER [Concomitant]
     Active Substance: ONDANSETRON HYDROCHLORIDE
     Dosage: 8 MILLIGRAM
     Route: 048
     Dates: start: 20190911, end: 20190912
  12. METOPROLOL. [Concomitant]
     Active Substance: METOPROLOL
     Indication: HYPERTENSION
     Route: 065
     Dates: start: 2014
  13. ABRAXANE [Suspect]
     Active Substance: PACLITAXEL
     Route: 041
     Dates: start: 20190911, end: 20190911
  14. MEDI4736 (DURVALUMAB) [Concomitant]
     Active Substance: DURVALUMAB
     Dosage: 1500 MILLIGRAM
     Route: 042
     Dates: start: 20190904, end: 20190904
  15. PROLOMET [Concomitant]
     Indication: HYPERTENSION
     Dosage: 25 MILLIGRAM
     Route: 048
     Dates: start: 20190911
  16. ABRAXANE [Suspect]
     Active Substance: PACLITAXEL
     Route: 041
     Dates: start: 20190822, end: 20190822
  17. ABRAXANE [Suspect]
     Active Substance: PACLITAXEL
     Route: 041
     Dates: start: 20190904, end: 20190904
  18. CARBOPLATIN. [Concomitant]
     Active Substance: CARBOPLATIN
     Route: 042
     Dates: start: 20190904, end: 20190904
  19. GRAFEEL [Concomitant]
     Indication: WHITE BLOOD CELL COUNT DECREASED
     Dosage: 300 MILLIGRAM
     Route: 058
     Dates: start: 20190927, end: 20190929
  20. PANTOPRAZOLE [Concomitant]
     Active Substance: PANTOPRAZOLE
     Indication: PROPHYLAXIS OF NAUSEA AND VOMITING
     Route: 065
     Dates: start: 20190814
  21. GRANISETRON [Concomitant]
     Active Substance: GRANISETRON
     Indication: PROPHYLAXIS OF NAUSEA AND VOMITING
     Dosage: 3 MILLIGRAM
     Route: 042
     Dates: start: 20190822, end: 20190822
  22. GRANISETRON [Concomitant]
     Active Substance: GRANISETRON
     Dosage: 4 MILLIGRAM
     Route: 042
     Dates: start: 20190911, end: 20190911
  23. PAN D [Concomitant]
     Dosage: 80 MILLIGRAM
     Route: 048
     Dates: start: 20190920, end: 20190921
  24. GRANISETRON [Concomitant]
     Active Substance: GRANISETRON
     Dosage: 3 MILLIGRAM
     Route: 042
     Dates: start: 20190904, end: 20190904
  25. PAN D [Concomitant]
     Dosage: 80 MILLIGRAM
     Route: 048
     Dates: start: 20190904, end: 20190905
  26. ZOFER [Concomitant]
     Active Substance: ONDANSETRON HYDROCHLORIDE
     Dosage: 8 MILLIGRAM
     Route: 048
     Dates: start: 20190904, end: 20190905
  27. ABRAXANE [Suspect]
     Active Substance: PACLITAXEL
     Route: 041
     Dates: start: 20190920, end: 20190920
  28. MEDI4736 (DURVALUMAB) [Concomitant]
     Active Substance: DURVALUMAB
     Indication: NON-SMALL CELL LUNG CANCER STAGE IV
     Dosage: 1500 MILLIGRAM
     Route: 041
     Dates: start: 20190814, end: 20190814
  29. GRAFEEL [Concomitant]
     Dosage: 300 MILLIGRAM
     Route: 058
     Dates: start: 20190927, end: 20190929
  30. PAN D [Concomitant]
     Dosage: 80 MILLIGRAM
     Route: 048
     Dates: start: 20190911, end: 20190912
  31. ZOFER [Concomitant]
     Active Substance: ONDANSETRON HYDROCHLORIDE
     Indication: PROPHYLAXIS OF NAUSEA AND VOMITING
     Dosage: 8 MILLIGRAM
     Route: 048
     Dates: start: 20190814, end: 20190815
  32. AMLODIPINE [Concomitant]
     Active Substance: AMLODIPINE BESYLATE
     Indication: HYPERTENSION
     Route: 065
     Dates: start: 201906
  33. DOMPERIDONE [Concomitant]
     Active Substance: DOMPERIDONE
     Indication: PROPHYLAXIS OF NAUSEA AND VOMITING
     Route: 065
     Dates: start: 20190814
  34. ONDANSETRON [Concomitant]
     Active Substance: ONDANSETRON
     Indication: PROPHYLAXIS OF NAUSEA AND VOMITING
     Route: 065
     Dates: start: 20190814
  35. FILGRASTIM [Concomitant]
     Active Substance: FILGRASTIM
     Indication: NEUTROPHIL COUNT DECREASED
     Route: 065
     Dates: start: 20190918
  36. ABRAXANE [Suspect]
     Active Substance: PACLITAXEL
     Route: 041
     Dates: start: 20190828, end: 20190828
  37. S?NUMLO [Concomitant]
     Indication: HYPERTENSION
     Dosage: 5 MILLIGRAM
     Route: 048
     Dates: start: 201906
  38. GRANISETRON [Concomitant]
     Active Substance: GRANISETRON
     Indication: PROPHYLAXIS OF NAUSEA AND VOMITING
     Dosage: 3 MILLIGRAM
     Route: 042
     Dates: start: 20190814, end: 20190814
  39. GRANISETRON [Concomitant]
     Active Substance: GRANISETRON
     Dosage: 3 MILLIGRAM
     Route: 042
     Dates: start: 20190828, end: 20190828
  40. ZOFER [Concomitant]
     Active Substance: ONDANSETRON HYDROCHLORIDE
     Dosage: 8 MILLIGRAM
     Route: 048
     Dates: start: 20190822, end: 20190823

REACTIONS (1)
  - Drug-induced liver injury [Recovered/Resolved]

NARRATIVE: CASE EVENT DATE: 20190930
